FAERS Safety Report 24308886 (Version 4)
Quarter: 2025Q1

REPORT INFORMATION
  Report Type: Spontaneous
  Country: GB (occurrence: GB)
  Receive Date: 20240911
  Receipt Date: 20250127
  Transmission Date: 20250409
  Serious: Yes (Death)
  Sender: TEVA
  Company Number: GB-TEVA-VS-3241000

PATIENT
  Age: 2 Year
  Sex: Female

DRUGS (1)
  1. EVEROLIMUS [Suspect]
     Active Substance: EVEROLIMUS
     Indication: Brain stem glioma
     Route: 065

REACTIONS (1)
  - Drug ineffective [Fatal]
